FAERS Safety Report 16257570 (Version 2)
Quarter: 2019Q2

REPORT INFORMATION
  Report Type: Spontaneous
  Country: ES (occurrence: ES)
  Receive Date: 20190430
  Receipt Date: 20190516
  Transmission Date: 20190711
  Serious: Yes (Other)
  Sender: FDA-Public Use
  Company Number: ES-PFIZER INC-2019178351

PATIENT
  Age: 86 Year
  Sex: Male

DRUGS (11)
  1. LEVOTHYROXINE. [Concomitant]
     Active Substance: LEVOTHYROXINE
     Dosage: UNK
  2. OMEPRAZOLE. [Concomitant]
     Active Substance: OMEPRAZOLE
     Dosage: UNK
  3. NERVINEX [Interacting]
     Active Substance: BRIVUDINE
     Indication: HERPES ZOSTER
     Dosage: 125 MG, 1X/DAY
     Route: 048
     Dates: start: 20190319, end: 20190326
  4. BISOPROLOL [Interacting]
     Active Substance: BISOPROLOL
     Indication: ATRIAL FIBRILLATION
     Dosage: 5 MG, 1X/DAY
     Route: 048
  5. BISOPROLOL [Interacting]
     Active Substance: BISOPROLOL
     Indication: HYPERTENSION
  6. CARBIDOPA, LEVODOPA AND ENTACAPONE [Interacting]
     Active Substance: CARBIDOPA\ENTACAPONE\LEVODOPA
     Indication: PARKINSON^S DISEASE
     Dosage: UNK, 1X/DAY (4, 1X/DAY, 150/37,5/200 MG)
  7. SAFINAMIDE MESYLATE [Interacting]
     Active Substance: SAFINAMIDE MESYLATE
     Indication: PARKINSON^S DISEASE
     Dosage: 100 MG, 1X/DAY
     Route: 048
  8. RISPERIDONE. [Interacting]
     Active Substance: RISPERIDONE
     Dosage: 1.5 MG, 1X/DAY
     Route: 048
  9. TAMSULOSIN [Concomitant]
     Active Substance: TAMSULOSIN
     Dosage: UNK
  10. DILTIAZEM HCL [Suspect]
     Active Substance: DILTIAZEM HYDROCHLORIDE
     Indication: HYPERTENSION
     Dosage: 60 MG, 2X/DAY
     Route: 048
  11. DILTIAZEM HCL [Interacting]
     Active Substance: DILTIAZEM HYDROCHLORIDE
     Indication: ATRIAL FIBRILLATION

REACTIONS (3)
  - Agitation [Recovering/Resolving]
  - Labelled drug-drug interaction medication error [Unknown]
  - Confusional state [Recovering/Resolving]

NARRATIVE: CASE EVENT DATE: 20190319
